FAERS Safety Report 4481033-6 (Version None)
Quarter: 2004Q4

REPORT INFORMATION
  Report Type: 
  Country: None (occurrence: None)
  Receive Date: 20041019
  Receipt Date: 20041004
  Transmission Date: 20050328
  Serious: Yes (Hospitalization)
  Sender: FDA-Public Use
  Company Number: 800154

PATIENT
  Age: 66 Year
  Sex: Male
  Weight: 96.1626 kg

DRUGS (17)
  1. DIANEAL [Suspect]
     Indication: PERITONEAL DIALYSIS
     Dosage: 11 L; QD; INTRAPERITONEAL
     Route: 033
     Dates: start: 20040713
  2. LANTUS [Suspect]
     Indication: HYPERGLYCAEMIA
     Dosage: SUBCUTANEOUS
     Route: 058
     Dates: start: 20040901, end: 20040901
  3. AMARYL [Concomitant]
  4. AMITRIPTYLINE HCL [Concomitant]
  5. AVANDIA [Concomitant]
  6. FERROUS SULFATE TAB [Concomitant]
  7. FOLIC ACID [Concomitant]
  8. LIPITOR [Concomitant]
  9. MULTI-VITAMINS [Concomitant]
  10. NIASPAN [Concomitant]
  11. NORMODYNE [Concomitant]
  12. PRILOSEC [Concomitant]
  13. PHOSLO [Concomitant]
  14. TRENTAL ^BORG^ [Concomitant]
  15. VITAMIN C [Concomitant]
  16. MAG-TAB SR [Concomitant]
  17. EPOGEN [Concomitant]

REACTIONS (1)
  - HYPOGLYCAEMIA [None]
